FAERS Safety Report 8359477-1 (Version None)
Quarter: 2012Q2

REPORT INFORMATION
  Report Type: 
  Country: None (occurrence: None)
  Receive Date: 20120515
  Receipt Date: 20120504
  Transmission Date: 20120825
  Serious: Yes (Hospitalization)
  Sender: FDA-Public Use
  Company Number: US-ELI_LILLY_AND_COMPANY-US201205002032

PATIENT
  Sex: Female

DRUGS (4)
  1. ANTIHYPERTENSIVES [Concomitant]
     Dosage: UNK
  2. LANTUS [Concomitant]
     Dosage: 80 U, EACH EVENING
  3. HUMALOG [Suspect]
     Indication: TYPE 2 DIABETES MELLITUS
     Dosage: UNK UNK, PRN
     Dates: start: 20070101
  4. HUMALOG [Suspect]
     Dosage: UNK UNK, PRN
     Dates: start: 20070101

REACTIONS (5)
  - DRUG EFFECT DECREASED [None]
  - WEIGHT DECREASED [None]
  - RENAL CANCER [None]
  - BLOOD GLUCOSE INCREASED [None]
  - MALAISE [None]
